FAERS Safety Report 9316332 (Version 3)
Quarter: 2014Q2

REPORT INFORMATION
  Report Type: Spontaneous
  Country: AU (occurrence: None)
  Receive Date: 20130521
  Receipt Date: 20140502
  Transmission Date: 20141212
  Serious: Yes (Hospitalization)
  Sender: FDA-Public Use
  Company Number: VAL_02527_2013

PATIENT
  Age: 99 Year
  Sex: Female

DRUGS (8)
  1. METOPROLOL [Suspect]
     Indication: PRODUCT USED FOR UNKNOWN INDICATION
     Dosage: (DF)
  2. CLOPIDOGREL [Suspect]
     Indication: PRODUCT USED FOR UNKNOWN INDICATION
     Dosage: (DF)75 MG,QD.
  3. TEMAZEPAM [Suspect]
     Indication: PRODUCT USED FOR UNKNOWN INDICATION
     Dosage: 10 MG QD,04/16/2012-04/18/2012.
  4. ALENDRONATE SODIUM [Concomitant]
  5. CALCIUM [Concomitant]
  6. FUROSEMIDE [Concomitant]
  7. RANITIDINE [Concomitant]
  8. SPIRONOLACTON [Concomitant]

REACTIONS (5)
  - Contusion [None]
  - Fall [None]
  - Femur fracture [None]
  - Laceration [None]
  - Increased tendency to bruise [None]
